FAERS Safety Report 12502349 (Version 2)
Quarter: 2016Q3

REPORT INFORMATION
  Report Type: Spontaneous
  Country: AU (occurrence: US)
  Receive Date: 20160627
  Receipt Date: 20160725
  Transmission Date: 20161109
  Serious: Yes (Death, Other)
  Sender: FDA-Public Use
  Company Number: AU-009507513-1606USA011107

PATIENT
  Sex: Female

DRUGS (4)
  1. CARBOPLATIN. [Suspect]
     Active Substance: CARBOPLATIN
     Indication: GLIONEURONAL TUMOUR
  2. TEMODAR [Suspect]
     Active Substance: TEMOZOLOMIDE
     Indication: GLIONEURONAL TUMOUR
     Route: 048
  3. LOMUSTINE (+) PROCARBAZINE (+) THIOGUANINE (+) VINCRISTINE SULFATE [Suspect]
     Active Substance: LOMUSTINE\PROCARBAZINE\THIOGUANINE\VINCRISTINE SULFATE
     Indication: GLIONEURONAL TUMOUR
  4. VINCRISTINE SULFATE. [Suspect]
     Active Substance: VINCRISTINE SULFATE
     Indication: GLIONEURONAL TUMOUR

REACTIONS (2)
  - Glioneuronal tumour [Fatal]
  - Drug ineffective [Fatal]
